FAERS Safety Report 5056203-9 (Version None)
Quarter: 2006Q3

REPORT INFORMATION
  Report Type: 
  Country: None (occurrence: None)
  Receive Date: 20060717
  Receipt Date: 20060706
  Transmission Date: 20061208
  Serious: Yes (Disabling)
  Sender: FDA-Public Use
  Company Number: 2006084508

PATIENT
  Sex: Female

DRUGS (1)
  1. AROMASIN [Suspect]
     Indication: DRUG USE FOR UNKNOWN INDICATION
     Dosage: 25 MG (25 MG, DAILY), ORAL
     Route: 048

REACTIONS (3)
  - ECZEMA [None]
  - SKIN EXFOLIATION [None]
  - SKIN FISSURES [None]
